FAERS Safety Report 10689124 (Version 1)
Quarter: 2015Q1

REPORT INFORMATION
  Report Type: Report from Study
  Country: US (occurrence: US)
  Receive Date: 20150105
  Receipt Date: 20150105
  Transmission Date: 20150720
  Serious: Yes (Death)
  Sender: FDA-Public Use
  Company Number: US-ROCHE-1516443

PATIENT
  Age: 80 Year
  Sex: Female
  Weight: 79 kg

DRUGS (6)
  1. CARBOPLATIN. [Suspect]
     Active Substance: CARBOPLATIN
     Route: 042
     Dates: start: 200712, end: 200902
  2. BEVACIZUMAB [Suspect]
     Active Substance: BEVACIZUMAB
     Indication: MALIGNANT PERITONEAL NEOPLASM
     Dosage: OVER 30-90 MINUTES, LAST DOSE PRIOR TO SAE: 09/JUN/2011 AND TOTAL DOSE ADMINISTERED : 1200 MG
     Route: 042
     Dates: start: 20100524
  3. PACLITAXEL. [Suspect]
     Active Substance: PACLITAXEL
     Route: 042
     Dates: start: 200712, end: 200902
  4. CARBOPLATIN. [Suspect]
     Active Substance: CARBOPLATIN
     Indication: MALIGNANT PERITONEAL NEOPLASM
     Dosage: 30 MINUTES, DOSE: AUC 5, LAST DOSE PRIOR TO SAE: 21/OCT/2010
     Route: 042
     Dates: start: 20100524
  5. BEVACIZUMAB [Suspect]
     Active Substance: BEVACIZUMAB
     Route: 042
     Dates: start: 200712, end: 200902
  6. PACLITAXEL. [Suspect]
     Active Substance: PACLITAXEL
     Indication: MALIGNANT PERITONEAL NEOPLASM
     Dosage: 3 HOURS, LAST DOSE PRIOR TO SAE: 21/OCT/2010.
     Route: 042
     Dates: start: 20100524

REACTIONS (1)
  - Myelodysplastic syndrome [Fatal]

NARRATIVE: CASE EVENT DATE: 20131028
